FAERS Safety Report 20664326 (Version 1)
Quarter: 2022Q2

REPORT INFORMATION
  Report Type: Spontaneous
  Country: FR (occurrence: FR)
  Receive Date: 20220401
  Receipt Date: 20220401
  Transmission Date: 20220720
  Serious: Yes (Hospitalization, Other)
  Sender: FDA-Public Use
  Company Number: FR-JNJFOC-20220354645

PATIENT
  Sex: Male

DRUGS (1)
  1. ERDAFITINIB [Suspect]
     Active Substance: ERDAFITINIB
     Indication: Product used for unknown indication
     Route: 065

REACTIONS (2)
  - Intestinal obstruction [Unknown]
  - Urinary cystectomy [Unknown]
